FAERS Safety Report 22626299 (Version 4)
Quarter: 2024Q1

REPORT INFORMATION
  Report Type: Spontaneous
  Country: NZ (occurrence: NZ)
  Receive Date: 20230621
  Receipt Date: 20240212
  Transmission Date: 20240410
  Serious: Yes (Hospitalization)
  Sender: FDA-Public Use
  Company Number: NZ-GRUNENTHAL-2023-112612

PATIENT
  Age: 73 Year
  Sex: Male
  Weight: 76 kg

DRUGS (12)
  1. TRAMADOL HYDROCHLORIDE [Interacting]
     Active Substance: TRAMADOL HYDROCHLORIDE
     Indication: Osteoporosis
     Dosage: 50 MILLIGRAM, 1/DAY
     Route: 048
     Dates: start: 19980309
  2. TRAMADOL HYDROCHLORIDE [Interacting]
     Active Substance: TRAMADOL HYDROCHLORIDE
     Indication: Neck pain
     Route: 065
  3. AMITRIPTYLINE [Interacting]
     Active Substance: AMITRIPTYLINE
     Indication: Osteoporosis
     Dosage: 10 MILLIGRAM, 1/DAY
     Route: 048
     Dates: start: 20230418, end: 20230420
  4. DIAZEPAM [Interacting]
     Active Substance: DIAZEPAM
     Indication: Osteoporosis
     Dosage: 2 MILLIGRAM, AS NEEDED
     Route: 048
     Dates: start: 20230418, end: 20230420
  5. NORFLEX [Interacting]
     Active Substance: ORPHENADRINE CITRATE
     Indication: Osteoporosis
     Dosage: 100 MILLIGRAM, 2/DAY
     Route: 048
     Dates: start: 20230418, end: 20230420
  6. UNSPECIFIED INGREDIENT [Suspect]
     Active Substance: UNSPECIFIED INGREDIENT
     Indication: Product used for unknown indication
     Dosage: 1 MILLILITRE
     Route: 030
     Dates: start: 20220328, end: 20220328
  7. ESTRADIOL [Concomitant]
     Active Substance: ESTRADIOL
     Indication: Trans-sexualism
     Dosage: 100 MICROGRAM, 2/WEEK
     Route: 062
     Dates: start: 19970101
  8. CHOLECALCIFEROL [Concomitant]
     Active Substance: CHOLECALCIFEROL
     Indication: Osteoporosis
     Dosage: 1.25 MILLIGRAM, 1/MONTH
     Route: 048
     Dates: start: 20180101
  9. FOSAMAX [Concomitant]
     Active Substance: ALENDRONATE SODIUM
     Indication: Osteoporosis
     Dosage: 70 MILLIGRAM, 1/WEEK
     Route: 048
     Dates: start: 20180101
  10. ACETAMINOPHEN [Concomitant]
     Active Substance: ACETAMINOPHEN
     Indication: Osteoporosis
     Dosage: 500 MILLIGRAM, AS NEEDED
     Route: 048
     Dates: start: 20220216
  11. CODEINE [Concomitant]
     Active Substance: CODEINE
     Indication: Osteoporosis
     Dosage: 15 MILLIGRAM, AS NEEDED
     Route: 048
     Dates: start: 20220304
  12. PREGABALIN [Concomitant]
     Active Substance: PREGABALIN
     Indication: Neck pain
     Dosage: 300 MILLIGRAM, 1/DAY
     Route: 048
     Dates: start: 20220411

REACTIONS (7)
  - Sinus bradycardia [Recovered/Resolved]
  - Syncope [Recovered/Resolved]
  - Drug interaction [Recovered/Resolved]
  - Amnesia [Recovered/Resolved]
  - Drug ineffective [Recovering/Resolving]
  - Off label use [Unknown]
  - Off label use [Unknown]

NARRATIVE: CASE EVENT DATE: 20230418
